FAERS Safety Report 14278957 (Version 1)
Quarter: 2017Q4

REPORT INFORMATION
  Report Type: Spontaneous
  Country: BR (occurrence: BR)
  Receive Date: 20171212
  Receipt Date: 20171212
  Transmission Date: 20180321
  Serious: Yes (Other)
  Sender: FDA-Public Use
  Company Number: BR-BIOMARINAP-BR-2017-116374

PATIENT
  Sex: Male
  Weight: 19 kg

DRUGS (3)
  1. CLENIL                             /00212602/ [Concomitant]
     Active Substance: BECLOMETHASONE DIPROPIONATE
     Indication: FATIGUE
  2. CLENIL                             /00212602/ [Concomitant]
     Active Substance: BECLOMETHASONE DIPROPIONATE
     Indication: DYSPNOEA
     Dosage: UNK UNK, QD
  3. VIMIZIM [Suspect]
     Active Substance: ELOSULFASE ALFA
     Indication: MUCOPOLYSACCHARIDOSIS IV
     Dosage: UNK, QW
     Route: 042
     Dates: start: 20170706

REACTIONS (8)
  - Cardiac disorder [Unknown]
  - Lung disorder [Unknown]
  - Spinal deformity [Unknown]
  - Constipation [Unknown]
  - Mobility decreased [Unknown]
  - Joint dislocation [Unknown]
  - Hypophagia [Unknown]
  - Limb deformity [Unknown]
